FAERS Safety Report 10170954 (Version 2)
Quarter: 2014Q2

REPORT INFORMATION
  Report Type: Spontaneous
  Country: US (occurrence: None)
  Receive Date: 20140512
  Receipt Date: 20140522
  Transmission Date: 20141212
  Serious: Yes (Life-Threatening, Hospitalization, Disabling)
  Sender: FDA-Public Use
  Company Number: 400225020-AKO-5315

PATIENT
  Age: 66 Year
  Sex: Female

DRUGS (1)
  1. AK-FLUOR (FLUORESCEIN SODIUM, USP) 25% AKORN [Suspect]
     Indication: DIAGNOSTIC PROCEDURE
     Dosage: 2ML, OT IV
     Route: 042
     Dates: start: 201404, end: 201404

REACTIONS (8)
  - Cardiac arrest [None]
  - Epigastric discomfort [None]
  - Fall [None]
  - Cardio-respiratory arrest [None]
  - Hypoxic-ischaemic encephalopathy [None]
  - Nausea [None]
  - Vomiting [None]
  - Dizziness [None]
